FAERS Safety Report 5606491-2 (Version None)
Quarter: 2008Q1

REPORT INFORMATION
  Report Type: 
  Country: None (occurrence: None)
  Receive Date: 20080129
  Receipt Date: 20080118
  Transmission Date: 20080703
  Serious: Yes (Hospitalization)
  Sender: FDA-Public Use
  Company Number: SE-JNJFOC-20080106622

PATIENT
  Age: 83 Year
  Sex: Female

DRUGS (8)
  1. REMICADE [Suspect]
  2. REMICADE [Suspect]
     Indication: RHEUMATOID ARTHRITIS
  3. FOSAMAX [Concomitant]
  4. KALCIPOS-D [Concomitant]
  5. ACETAMINOPHEN [Concomitant]
  6. BRUFEN [Concomitant]
  7. EMTHEXAT [Concomitant]
  8. PLENDIL [Concomitant]

REACTIONS (4)
  - ILEUS [None]
  - LUNG SQUAMOUS CELL CARCINOMA STAGE IV [None]
  - METASTASIS [None]
  - PERITONEAL CARCINOMA [None]
